FAERS Safety Report 7820858-3 (Version None)
Quarter: 2011Q4

REPORT INFORMATION
  Report Type: 
  Country: None (occurrence: None)
  Receive Date: 20111018
  Receipt Date: 20100820
  Transmission Date: 20120403
  Serious: No
  Sender: FDA-Public Use
  Company Number: US-ASTRAZENECA-2010SE39300

PATIENT
  Age: 41 Year
  Sex: Female
  Weight: 59.9 kg

DRUGS (5)
  1. SYMBICORT [Suspect]
     Indication: ASTHMA
     Dosage: 320 MCG BID
     Route: 055
     Dates: start: 20100201
  2. ALBUTEROL [Concomitant]
  3. PERCOCET [Concomitant]
  4. ALLOPURINOL [Concomitant]
  5. SPIRIVA [Concomitant]

REACTIONS (2)
  - DYSPNOEA [None]
  - CHEST PAIN [None]
